FAERS Safety Report 8299342-1 (Version None)
Quarter: 2012Q2

REPORT INFORMATION
  Report Type: 
  Country: None (occurrence: None)
  Receive Date: 20120416
  Receipt Date: 20120416
  Transmission Date: 20120825
  Serious: No
  Sender: FDA-Public Use
  Company Number: None

PATIENT
  Age: 53 Year
  Sex: Female

DRUGS (10)
  1. CLINDAMYCIN [Suspect]
     Dates: start: 20070713, end: 20070723
  2. XANAX XR [Suspect]
     Dates: start: 20070601, end: 20070820
  3. ATIVAN [Concomitant]
  4. VICODIN [Concomitant]
  5. PRILOSEC [Concomitant]
  6. TRAZODONE HCL [Concomitant]
  7. SYNTHROID [Concomitant]
  8. PAXIL [Concomitant]
  9. PHENERGAN HCL [Concomitant]
  10. KLONOPIN [Concomitant]

REACTIONS (13)
  - LIVER DISORDER [None]
  - ASPARTATE AMINOTRANSFERASE INCREASED [None]
  - ABDOMINAL PAIN UPPER [None]
  - CHOLECYSTITIS CHRONIC [None]
  - BLOOD ALKALINE PHOSPHATASE INCREASED [None]
  - HALLUCINATION [None]
  - DRUG WITHDRAWAL SYNDROME [None]
  - BLOOD BILIRUBIN INCREASED [None]
  - BILE DUCT STONE [None]
  - HEPATOTOXICITY [None]
  - VOMITING [None]
  - NAUSEA [None]
  - ALANINE AMINOTRANSFERASE INCREASED [None]
